FAERS Safety Report 8174347-X (Version None)
Quarter: 2012Q1

REPORT INFORMATION
  Report Type: 
  Country: None (occurrence: None)
  Receive Date: 20120227
  Receipt Date: 20120210
  Transmission Date: 20120608
  Serious: Yes (Hospitalization, Other)
  Sender: FDA-Public Use
  Company Number: 2012P1001829

PATIENT
  Age: 90 Year
  Sex: Female
  Weight: 72.5755 kg

DRUGS (16)
  1. TRAMADOL HCL [Concomitant]
  2. POTASSIUM CHLORIDE [Concomitant]
  3. ZOCOR [Concomitant]
  4. KLONOPIN [Concomitant]
  5. CALCIUM [Concomitant]
  6. TRIMETHOPRIM [Concomitant]
  7. CLONIDINE [Concomitant]
  8. ARICEPT [Concomitant]
  9. CELEXA [Concomitant]
  10. COUMADIN [Concomitant]
  11. LISINOPRIL [Concomitant]
  12. IRON [Concomitant]
  13. TRENTAL [Concomitant]
  14. PRILOSEC [Concomitant]
  15. LANOXIN [Concomitant]
  16. FENTANYL [Suspect]
     Indication: BACK PAIN
     Dosage: 1 PATCH;TDER
     Route: 062
     Dates: start: 20120105, end: 20120110

REACTIONS (8)
  - MENTAL STATUS CHANGES [None]
  - DYSPNOEA [None]
  - EXERCISE TOLERANCE DECREASED [None]
  - SOMNOLENCE [None]
  - MOVEMENT DISORDER [None]
  - STARING [None]
  - UNRESPONSIVE TO STIMULI [None]
  - HYPERSOMNIA [None]
